FAERS Safety Report 5720819-4 (Version None)
Quarter: 2008Q2

REPORT INFORMATION
  Report Type: 
  Country: None (occurrence: None)
  Receive Date: 20080429
  Receipt Date: 20080422
  Transmission Date: 20081010
  Serious: Yes (Hospitalization)
  Sender: FDA-Public Use
  Company Number: PHRM2008FR01368

PATIENT
  Age: 72 Year
  Sex: Male

DRUGS (9)
  1. IRBESARTAN [Concomitant]
  2. LERCANIDIPINE [Concomitant]
  3. FENOFIBRATE [Concomitant]
  4. METFORMIN HCL [Concomitant]
  5. NAFTAZONE [Concomitant]
  6. DUTASTERIDE [Concomitant]
  7. ESCITALOPRAM OXALATE (SEROPLEX) [Concomitant]
  8. VOLTAREN [Suspect]
     Indication: BACK PAIN
     Dosage: 1 DF, QD
     Route: 030
     Dates: start: 20080109, end: 20080111
  9. PREVISCAN [Suspect]
     Indication: ATRIAL FIBRILLATION
     Dates: start: 19930101, end: 20080113

REACTIONS (14)
  - ABDOMINAL PAIN UPPER [None]
  - BLADDER CANCER [None]
  - BLOOD CREATININE INCREASED [None]
  - C-REACTIVE PROTEIN INCREASED [None]
  - DYSPNOEA [None]
  - HAEMATURIA [None]
  - HAEMOGLOBIN DECREASED [None]
  - INFLAMMATION [None]
  - INTERNATIONAL NORMALISED RATIO INCREASED [None]
  - METASTASES TO LIVER [None]
  - NEUTROPHIL COUNT INCREASED [None]
  - PALLOR [None]
  - THIRST [None]
  - WHITE BLOOD CELL COUNT INCREASED [None]
